FAERS Safety Report 6824263-8 (Version None)
Quarter: 2010Q3

REPORT INFORMATION
  Report Type: 
  Country: None (occurrence: None)
  Receive Date: 20100708
  Receipt Date: 20061019
  Transmission Date: 20110219
  Serious: No
  Sender: FDA-Public Use
  Company Number: US-PFIZER INC-2006128538

PATIENT
  Sex: Female
  Weight: 42.18 kg

DRUGS (7)
  1. CHANTIX [Suspect]
     Indication: SMOKING CESSATION THERAPY
     Dates: start: 20061010
  2. DYAZIDE [Concomitant]
     Indication: HYPERTENSION
  3. SIMVASTATIN [Concomitant]
     Indication: BLOOD CHOLESTEROL INCREASED
  4. RISEDRONATE SODIUM [Concomitant]
  5. VITAMINS [Concomitant]
  6. ACETYLSALICYLIC ACID [Concomitant]
  7. LEKOVIT CA [Concomitant]

REACTIONS (1)
  - NAUSEA [None]
